FAERS Safety Report 7644590-4 (Version None)
Quarter: 2011Q3

REPORT INFORMATION
  Report Type: 
  Country: None (occurrence: None)
  Receive Date: 20110725
  Receipt Date: 20110718
  Transmission Date: 20111222
  Serious: Yes (Other)
  Sender: FDA-Public Use
  Company Number: CIP11001791

PATIENT
  Sex: Female

DRUGS (1)
  1. RISEDRONATE SODIUM [Suspect]
     Dosage: ORAL
     Route: 048

REACTIONS (5)
  - FEMUR FRACTURE [None]
  - PATHOLOGICAL FRACTURE [None]
  - ARTHRALGIA [None]
  - PSEUDARTHROSIS [None]
  - FRACTURE NONUNION [None]
